FAERS Safety Report 11089990 (Version 1)
Quarter: 2015Q2

REPORT INFORMATION
  Report Type: Spontaneous
  Country: US (occurrence: None)
  Receive Date: 20150504
  Receipt Date: 20150504
  Transmission Date: 20150821
  Serious: Yes (Hospitalization)
  Sender: FDA-Public Use
  Company Number: None

PATIENT
  Age: 75 Year
  Sex: Male
  Weight: 63 kg

DRUGS (2)
  1. CARFILZOMIB 56MG/MSG IV ONYX [Suspect]
     Active Substance: CARFILZOMIB
     Indication: PLASMA CELL MYELOMA
     Dosage: 56 MG DAYS 15, 16?THERAPY ?4/28, 4/29
  2. DEXAMETHSONE 8 MG [Suspect]
     Active Substance: DEXAMETHASONE
     Dosage: 8 MG,  DAYS 8,9?THERAPY?4/28, 4/29

REACTIONS (2)
  - Pain in extremity [None]
  - Transient ischaemic attack [None]

NARRATIVE: CASE EVENT DATE: 20150429
